FAERS Safety Report 4344788-7 (Version None)
Quarter: 2004Q2

REPORT INFORMATION
  Report Type: 
  Country: None (occurrence: None)
  Receive Date: 20040420
  Receipt Date: 20040406
  Transmission Date: 20050107
  Serious: Yes (Other)
  Sender: FDA-Public Use
  Company Number: US-JNJFOC-20040401330

PATIENT
  Age: 60 Year
  Sex: Male
  Weight: 108.8633 kg

DRUGS (7)
  1. REMICADE [Suspect]
     Indication: RHEUMATOID ARTHRITIS
     Dosage: 500/600 MG
     Dates: start: 20031201
  2. HUMIRA [Suspect]
     Indication: RHEUMATOID ARTHRITIS
     Dates: start: 20040201
  3. METHOTREXATE SODIUM [Concomitant]
  4. INDOCIN [Concomitant]
  5. FOLIC ACIC (FOLIC ACID) [Concomitant]
  6. CALCIUM WITH D (CALCIUM WITH VITAMIN D) [Concomitant]
  7. FOSAMAX (ALENDRONATE SDOIUM) [Concomitant]

REACTIONS (4)
  - DRUG EFFECT DECREASED [None]
  - DRUG INEFFECTIVE [None]
  - EAR INFECTION [None]
  - SINUSITIS [None]
